FAERS Safety Report 5956011-8 (Version None)
Quarter: 2008Q4

REPORT INFORMATION
  Report Type: 
  Country: None (occurrence: None)
  Receive Date: 20081112
  Receipt Date: 20081029
  Transmission Date: 20090506
  Serious: Yes (Other)
  Sender: FDA-Public Use
  Company Number: 231283K08USA

PATIENT
  Sex: Male

DRUGS (4)
  1. REBIF [Suspect]
     Indication: MULTIPLE SCLEROSIS
     Dates: start: 20080301
  2. ALCOHOL (ETHANOL) [Suspect]
     Dates: start: 20080301
  3. ECSTAY (METHYLENEDIOXYMETHAMPHETAMINE) [Suspect]
     Dates: end: 20080101
  4. ABILIFY [Suspect]
     Dates: end: 20080301

REACTIONS (3)
  - MATERNAL DRUGS AFFECTING FOETUS [None]
  - STILLBIRTH [None]
  - UMBILICAL CORD AROUND NECK [None]
